FAERS Safety Report 12210251 (Version 2)
Quarter: 2016Q2

REPORT INFORMATION
  Report Type: Spontaneous
  Country: TR (occurrence: TR)
  Receive Date: 20160325
  Receipt Date: 20160510
  Transmission Date: 20160815
  Serious: Yes (Hospitalization)
  Sender: FDA-Public Use
  Company Number: TR-ROCHE-1730234

PATIENT
  Age: 20 Year
  Sex: Female
  Weight: 68 kg

DRUGS (1)
  1. XENICAL [Suspect]
     Active Substance: ORLISTAT
     Indication: PRODUCT USED FOR UNKNOWN INDICATION
     Route: 048
     Dates: start: 20160317, end: 20160321

REACTIONS (6)
  - Dizziness [Recovered/Resolved]
  - Erythema [Recovered/Resolved]
  - Abdominal distension [Recovered/Resolved]
  - Pruritus genital [Recovered/Resolved]
  - Nausea [Recovered/Resolved]
  - Muscle spasms [Recovered/Resolved]

NARRATIVE: CASE EVENT DATE: 20160321
